FAERS Safety Report 5250175-X (Version None)
Quarter: 2007Q1

REPORT INFORMATION
  Report Type: 
  Country: None (occurrence: None)
  Receive Date: 20070228
  Receipt Date: 20060306
  Transmission Date: 20070707
  Serious: No
  Sender: FDA-Public Use
  Company Number: US-GLAXOSMITHKLINE-A0594403A

PATIENT
  Age: 33 Year
  Sex: Male

DRUGS (4)
  1. LAMICTAL [Suspect]
     Indication: BIPOLAR DISORDER
     Dosage: 300MGD UNKNOWN
     Route: 048
     Dates: start: 20050425
  2. PAXIL CR [Suspect]
     Indication: DEPRESSION
     Dosage: 30MG PER DAY
     Route: 048
     Dates: start: 20050216, end: 20060207
  3. WELLBUTRIN [Suspect]
     Indication: DEPRESSED MOOD
     Dosage: 300MG PER DAY
     Route: 048
     Dates: start: 20050101, end: 20050425
  4. TEGRETOL [Suspect]
     Indication: BIPOLAR DISORDER
     Dosage: 200MG TWICE PER DAY
     Route: 048
     Dates: start: 20060201, end: 20060217

REACTIONS (10)
  - AFFECT LABILITY [None]
  - ANGER [None]
  - ASTHENIA [None]
  - DRUG INEFFECTIVE [None]
  - DRUG INTERACTION [None]
  - DRUG TOXICITY [None]
  - DYSPNOEA [None]
  - IRRITABILITY [None]
  - MOOD SWINGS [None]
  - SLEEP APNOEA SYNDROME [None]
